FAERS Safety Report 13739950 (Version 3)
Quarter: 2017Q4

REPORT INFORMATION
  Report Type: Spontaneous
  Country: US (occurrence: US)
  Receive Date: 20170711
  Receipt Date: 20171128
  Transmission Date: 20180320
  Serious: Yes (Other)
  Sender: FDA-Public Use
  Company Number: US-TEVA-785757USA

PATIENT
  Sex: Female
  Weight: 51.3 kg

DRUGS (6)
  1. REGLAN [Concomitant]
     Active Substance: METOCLOPRAMIDE HYDROCHLORIDE
  2. SYNRIBO [Suspect]
     Active Substance: OMACETAXINE MEPESUCCINATE
     Indication: CHRONIC MYELOID LEUKAEMIA
     Dates: start: 201706, end: 20171020
  3. LEXAPRO [Concomitant]
     Active Substance: ESCITALOPRAM OXALATE
  4. EYE DROPS [Concomitant]
     Active Substance: UNSPECIFIED INGREDIENT
  5. PREDNISOLONE. [Concomitant]
     Active Substance: PREDNISOLONE
  6. ZOFRAN [Concomitant]
     Active Substance: ONDANSETRON HYDROCHLORIDE

REACTIONS (6)
  - White blood cell count decreased [Unknown]
  - Arthralgia [Recovered/Resolved]
  - Erythema [Recovered/Resolved]
  - Joint swelling [Recovered/Resolved]
  - Malabsorption [Unknown]
  - Pain [Recovered/Resolved]

NARRATIVE: CASE EVENT DATE: 2017
